FAERS Safety Report 9639052 (Version 2)
Quarter: 2013Q4

REPORT INFORMATION
  Report Type: Report from Study
  Country: US (occurrence: US)
  Receive Date: 20131022
  Receipt Date: 20131023
  Transmission Date: 20140711
  Serious: Yes (Other)
  Sender: FDA-Public Use
  Company Number: US-ABBVIE-13P-163-1159017-00

PATIENT
  Age: 55 Year
  Sex: Female

DRUGS (5)
  1. HUMIRA [Suspect]
     Indication: CROHN^S DISEASE
     Route: 058
     Dates: start: 2009, end: 2009
  2. HUMIRA [Suspect]
     Dosage: 2 WEEKS AFTER INITIAL DOSE
     Route: 058
     Dates: start: 2009, end: 2009
  3. HUMIRA [Suspect]
     Route: 058
     Dates: start: 2009, end: 201307
  4. HUMIRA [Suspect]
     Route: 058
     Dates: start: 201308
  5. PENTASA [Concomitant]
     Indication: CROHN^S DISEASE

REACTIONS (2)
  - Small intestinal obstruction [Recovered/Resolved]
  - Ileal perforation [Recovered/Resolved]
